FAERS Safety Report 14489992 (Version 2)
Quarter: 2018Q2

REPORT INFORMATION
  Report Type: Other
  Country: TR (occurrence: TR)
  Receive Date: 20180206
  Receipt Date: 20180422
  Transmission Date: 20180711
  Serious: Yes (Other)
  Sender: FDA-Public Use
  Company Number: TR-APOTEX-2018AP006252

PATIENT

DRUGS (1)
  1. PAROXETINE. [Suspect]
     Active Substance: PAROXETINE
     Indication: PANIC ATTACK
     Dosage: 20 MG, QD
     Route: 048
     Dates: start: 20101110, end: 20180104

REACTIONS (4)
  - Glaucoma [Recovered/Resolved with Sequelae]
  - Illusion [Recovered/Resolved with Sequelae]
  - Night sweats [Recovered/Resolved with Sequelae]
  - Pruritus allergic [Recovered/Resolved with Sequelae]
